FAERS Safety Report 4719177-3 (Version None)
Quarter: 2005Q3

REPORT INFORMATION
  Report Type: 
  Country: None (occurrence: None)
  Receive Date: 20050720
  Receipt Date: 20050630
  Transmission Date: 20060218
  Serious: Yes (Hospitalization)
  Sender: FDA-Public Use
  Company Number: AU_050708689

PATIENT
  Age: 68 Year
  Sex: Male

DRUGS (2)
  1. GEMZAR [Suspect]
     Indication: NON-SMALL CELL LUNG CANCER
     Dosage: 10000 MG OTHER
     Route: 050
     Dates: start: 19970101
  2. MS CONTIN [Concomitant]

REACTIONS (4)
  - CARDIOMYOPATHY [None]
  - MALIGNANT NEOPLASM PROGRESSION [None]
  - NEPHROTIC SYNDROME [None]
  - NON-SMALL CELL LUNG CANCER [None]
